FAERS Safety Report 7161336-7 (Version None)
Quarter: 2010Q4

REPORT INFORMATION
  Report Type: 
  Country: None (occurrence: None)
  Receive Date: 20101215
  Receipt Date: 20101209
  Transmission Date: 20110411
  Serious: Yes (Disabling)
  Sender: FDA-Public Use
  Company Number: GB-TEVA-259301ISR

PATIENT
  Age: 50 Year

DRUGS (1)
  1. PREDNISOLONE [Suspect]
     Indication: IMMUNOSUPPRESSION

REACTIONS (2)
  - BLINDNESS UNILATERAL [None]
  - CHORIORETINOPATHY [None]
